FAERS Safety Report 4691007-8 (Version None)
Quarter: 2005Q2

REPORT INFORMATION
  Report Type: 
  Country: None (occurrence: None)
  Receive Date: 20050614
  Receipt Date: 20050614
  Transmission Date: 20051028
  Serious: Yes (Hospitalization)
  Sender: FDA-Public Use
  Company Number: None

PATIENT
  Age: 69 Year
  Sex: Male

DRUGS (2)
  1. ENOXAPARIN INJECTION [Suspect]
     Indication: PULMONARY EMBOLISM
     Dosage: 80 MG SC BID
     Route: 058
  2. ENOXAPARIN INJECTION [Suspect]
     Indication: THROMBOSIS PROPHYLAXIS
     Dosage: 80 MG SC BID
     Route: 058

REACTIONS (3)
  - ANORECTAL DISORDER [None]
  - HAEMATOCRIT DECREASED [None]
  - HAEMATOMA [None]
